FAERS Safety Report 7658979-0 (Version None)
Quarter: 2011Q3

REPORT INFORMATION
  Report Type: 
  Country: None (occurrence: None)
  Receive Date: 20110805
  Receipt Date: 20110725
  Transmission Date: 20111222
  Serious: Yes (Hospitalization)
  Sender: FDA-Public Use
  Company Number: US-ELI_LILLY_AND_COMPANY-US201107007987

PATIENT
  Sex: Female

DRUGS (7)
  1. CYMBALTA [Suspect]
     Indication: DEPRESSION
     Dosage: 120 MG, QD
  2. XANAX                                   /USA/ [Concomitant]
  3. VISTARIL [Concomitant]
  4. BUSPAR [Concomitant]
  5. NUVIGIL [Concomitant]
  6. LAMICTAL [Concomitant]
  7. ATIVAN [Concomitant]

REACTIONS (9)
  - SUICIDAL IDEATION [None]
  - MOOD SWINGS [None]
  - ABNORMAL BEHAVIOUR [None]
  - AGITATION [None]
  - CRYING [None]
  - NERVOUSNESS [None]
  - INTENTIONAL DRUG MISUSE [None]
  - PERSONALITY DISORDER [None]
  - DRUG WITHDRAWAL SYNDROME [None]
